FAERS Safety Report 8242674-3 (Version None)
Quarter: 2012Q1

REPORT INFORMATION
  Report Type: 
  Country: None (occurrence: None)
  Receive Date: 20120329
  Receipt Date: 20120322
  Transmission Date: 20120608
  Serious: Yes (Disabling)
  Sender: FDA-Public Use
  Company Number: JP-GE HEALTHCARE MEDICAL DIAGNOSTICS-OSCN-NO-0810S-0550

PATIENT
  Sex: Female

DRUGS (10)
  1. GADOLINIUM UNSPECIFIED [Concomitant]
     Dates: start: 20000727, end: 20000727
  2. GADOLINIUM UNSPECIFIED [Concomitant]
     Dates: start: 20011213, end: 20011213
  3. OMNISCAN [Suspect]
     Indication: BLADDER CANCER
     Dosage: LESS THAN 10 ML.
     Route: 042
     Dates: start: 20021228, end: 20021228
  4. EPOGEN [Concomitant]
     Indication: ANAEMIA
     Route: 058
     Dates: start: 19940101
  5. PLETAL [Concomitant]
     Indication: ATRIAL FIBRILLATION
  6. FERROUS CITRATE [Concomitant]
  7. MAGNEVIST [Concomitant]
     Dates: start: 20050208, end: 20050208
  8. OMNISCAN [Suspect]
     Indication: RENAL CANCER STAGE I
     Dates: start: 20060527, end: 20060527
  9. WARFARIN SODIUM [Concomitant]
     Indication: ATRIAL FIBRILLATION
  10. DIGOXIN [Concomitant]

REACTIONS (7)
  - JOINT CONTRACTURE [None]
  - TALIPES [None]
  - HAEMODIALYSIS [None]
  - FIBROSIS [None]
  - SCLEREMA [None]
  - NEPHROGENIC SYSTEMIC FIBROSIS [None]
  - SCLERODERMA [None]
